FAERS Safety Report 9878469 (Version 1)
Quarter: 2014Q1

REPORT INFORMATION
  Report Type: Spontaneous
  Country: US (occurrence: US)
  Receive Date: 20140206
  Receipt Date: 20140206
  Transmission Date: 20141002
  Serious: No
  Sender: FDA-Public Use
  Company Number: US-ALLERGAN-1311969US

PATIENT
  Age: 46 Year
  Sex: Female

DRUGS (2)
  1. BOTOX [Suspect]
     Indication: PRODUCT USED FOR UNKNOWN INDICATION
     Dosage: UNK, SINGLE
     Route: 030
     Dates: start: 20130805, end: 20130805
  2. JUVEDERM [Suspect]
     Indication: SKIN WRINKLING
     Dosage: UNK UNK, SINGLE
     Route: 023
     Dates: start: 20130805, end: 20130805

REACTIONS (5)
  - Swelling face [Unknown]
  - Pruritus [Unknown]
  - Rash [Unknown]
  - Myalgia [Unknown]
  - Pyrexia [Unknown]
